FAERS Safety Report 21219778 (Version 1)
Quarter: 2022Q3

REPORT INFORMATION
  Report Type: Spontaneous
  Country: FR (occurrence: FR)
  Receive Date: 20220817
  Receipt Date: 20220817
  Transmission Date: 20221027
  Serious: Yes (Hospitalization, Other)
  Sender: FDA-Public Use
  Company Number: FR-AFSSAPS-AVNT20220598

PATIENT
  Age: 24 Year
  Sex: Male

DRUGS (5)
  1. ZOLPIDEM [Suspect]
     Active Substance: ZOLPIDEM TARTRATE
     Indication: Product used for unknown indication
     Dosage: 10 MG PER PERSON
     Route: 048
  2. ZOLPIDEM [Suspect]
     Active Substance: ZOLPIDEM TARTRATE
     Indication: Product used for unknown indication
     Dosage: 10 MG INJECTED AT NIGHT
     Route: 042
  3. COCAINE [Suspect]
     Active Substance: COCAINE
     Indication: Product used for unknown indication
     Dosage: 0.5G/D IN SNIFF OR SMOKE
  4. COCAINE [Suspect]
     Active Substance: COCAINE
     Dosage: 1 DOSE IV/WEEK
     Route: 042
  5. ALCOHOL [Suspect]
     Active Substance: ALCOHOL
     Indication: Product used for unknown indication
     Dosage: 6-7 BEERS HT/D
     Route: 048

REACTIONS (1)
  - Substance use disorder [Not Recovered/Not Resolved]
